FAERS Safety Report 5976734-4 (Version None)
Quarter: 2008Q4

REPORT INFORMATION
  Report Type: 
  Country: None (occurrence: None)
  Receive Date: 20081203
  Receipt Date: 20081120
  Transmission Date: 20090506
  Serious: Yes (Hospitalization)
  Sender: FDA-Public Use
  Company Number: DE-CELGENEUS-062-21880-08111119

PATIENT
  Sex: Male
  Weight: 92 kg

DRUGS (16)
  1. REVLIMID [Suspect]
     Indication: MULTIPLE MYELOMA
     Route: 048
     Dates: start: 20081101
  2. REVLIMID [Suspect]
     Route: 048
     Dates: start: 20081101
  3. REVLIMID [Suspect]
     Route: 048
     Dates: start: 20080825
  4. DEXAMETHASONE [Suspect]
     Indication: MULTIPLE MYELOMA
     Route: 048
     Dates: start: 20081105
  5. DEXAMETHASONE [Suspect]
     Route: 048
     Dates: start: 20080601
  6. DEXAMETHASONE [Suspect]
     Route: 048
     Dates: start: 20080601
  7. DIGITOXIN TAB [Concomitant]
     Route: 065
  8. RAMIPRIL [Concomitant]
     Indication: HYPERTENSION
     Route: 065
  9. TORSEMIDE [Concomitant]
     Route: 065
     Dates: start: 20080901
  10. BISOPROLOL FUMARATE [Concomitant]
     Indication: HYPERTENSION
     Route: 065
  11. OMEPRAZOLE [Concomitant]
     Route: 065
  12. ALLOPURINOL [Concomitant]
     Indication: HYPERURICAEMIA
     Route: 065
  13. ASPIRIN [Concomitant]
     Route: 065
  14. MOLSIDOMIN [Concomitant]
     Route: 065
  15. MAGNESIUM SULFATE [Concomitant]
     Route: 065
     Dates: start: 20080701
  16. DARBEPOETIN ALFA [Concomitant]
     Route: 065
     Dates: start: 20080827

REACTIONS (1)
  - PLEURISY [None]
